FAERS Safety Report 10524024 (Version 1)
Quarter: 2014Q4

REPORT INFORMATION
  Report Type: Spontaneous
  Country: US (occurrence: US)
  Receive Date: 20141017
  Receipt Date: 20141017
  Transmission Date: 20150528
  Serious: Yes (Hospitalization)
  Sender: FDA-Public Use
  Company Number: US-ROCHE-1472965

PATIENT
  Sex: Male

DRUGS (15)
  1. KLONOPIN [Suspect]
     Active Substance: CLONAZEPAM
     Dosage: CURRENT DOSE
     Route: 065
  2. LORAZEPAM. [Concomitant]
     Active Substance: LORAZEPAM
     Indication: STRESS
  3. VITAMIN D2 [Concomitant]
     Active Substance: ERGOCALCIFEROL
     Indication: OSTEOPOROSIS
     Route: 065
  4. ACYCLOVIR. [Concomitant]
     Active Substance: ACYCLOVIR
     Indication: HERPES ZOSTER
     Route: 065
  5. SOVALDI [Suspect]
     Active Substance: SOFOSBUVIR
     Indication: HEPATITIS INFECTIOUS
     Route: 065
     Dates: start: 20140829
  6. KLONOPIN [Suspect]
     Active Substance: CLONAZEPAM
     Indication: STRESS
     Route: 065
  7. LORAZEPAM. [Concomitant]
     Active Substance: LORAZEPAM
     Indication: NERVOUSNESS
     Route: 065
  8. PEGASYS [Suspect]
     Active Substance: PEGINTERFERON ALFA-2A
     Indication: HEPATITIS INFECTIOUS
     Route: 065
     Dates: start: 20140829
  9. KLONOPIN [Suspect]
     Active Substance: CLONAZEPAM
     Route: 065
  10. AMITRIPTYLINE [Concomitant]
     Active Substance: AMITRIPTYLINE
     Route: 065
  11. RIBAVIRIN. [Suspect]
     Active Substance: RIBAVIRIN
     Indication: HEPATITIS INFECTIOUS
     Dosage: 3 CAPSULES, TWICE A DAY
     Route: 065
     Dates: start: 20140829
  12. KLONOPIN [Suspect]
     Active Substance: CLONAZEPAM
     Indication: NERVOUSNESS
     Route: 065
  13. METHADONE [Concomitant]
     Active Substance: METHADONE HYDROCHLORIDE
     Indication: ARTHRALGIA
     Dosage: 20 YEARS AGO
     Route: 065
  14. CALCIUM CITRATE [Concomitant]
     Active Substance: CALCIUM CITRATE
     Indication: OSTEOPOROSIS
     Route: 065
  15. TRAZODONE [Concomitant]
     Active Substance: TRAZODONE HYDROCHLORIDE
     Route: 065

REACTIONS (20)
  - Cervical vertebral fracture [Unknown]
  - Injection site erythema [Not Recovered/Not Resolved]
  - Drug withdrawal syndrome [Unknown]
  - Gallbladder pain [Unknown]
  - Hepatomegaly [Unknown]
  - Osteoporosis [Unknown]
  - Gastric ulcer [Recovered/Resolved]
  - Prostatomegaly [Unknown]
  - Herpes zoster [Recovered/Resolved]
  - Hiatus hernia [Not Recovered/Not Resolved]
  - Influenza [Unknown]
  - Cholelithiasis [Unknown]
  - Body temperature increased [Recovered/Resolved]
  - Loss of consciousness [Recovered/Resolved]
  - Rib fracture [Unknown]
  - Arthritis [Not Recovered/Not Resolved]
  - Pain in extremity [Not Recovered/Not Resolved]
  - Infection [Unknown]
  - Hepatic enzyme increased [Unknown]
  - Tibia fracture [Recovered/Resolved]
